FAERS Safety Report 8325336-3 (Version None)
Quarter: 2012Q2

REPORT INFORMATION
  Report Type: 
  Country: None (occurrence: None)
  Receive Date: 20120501
  Receipt Date: 20120328
  Transmission Date: 20120825
  Serious: Yes (Hospitalization)
  Sender: FDA-Public Use
  Company Number: US-ROCHE-1063688

PATIENT
  Sex: Female
  Weight: 86.17 kg

DRUGS (6)
  1. PHENERGAN [Concomitant]
     Dates: start: 20111004
  2. BLINDED ALISPORIVIR [Suspect]
     Indication: HEPATITIS C
     Dosage: LAST DOSE PRIOR TO EVENT:08/OCT/2011
     Route: 048
     Dates: start: 20110712, end: 20111018
  3. COPEGUS [Suspect]
     Indication: HEPATITIS C
     Dosage: LAST DOSE PRIOR TO EVENT:08/OCT/2011
     Dates: start: 20110712, end: 20111018
  4. PEGASYS [Suspect]
     Indication: HEPATITIS C
     Dosage: LAST DOSE PRIOR TO EVENT:27/SEP/2011
     Dates: start: 20110712, end: 20111018
  5. DICLOFENAC [Concomitant]
     Dates: start: 20110831
  6. PRILOSEC [Concomitant]
     Dates: start: 20111004

REACTIONS (5)
  - PANCREATITIS ACUTE [None]
  - PANCYTOPENIA [None]
  - DIARRHOEA [None]
  - HYPOMAGNESAEMIA [None]
  - HYPOKALAEMIA [None]
